FAERS Safety Report 9603385 (Version 2)
Quarter: 2014Q2

REPORT INFORMATION
  Report Type: Spontaneous
  Country: US (occurrence: US)
  Receive Date: 20131007
  Receipt Date: 20140423
  Transmission Date: 20141212
  Serious: No
  Sender: FDA-Public Use
  Company Number: US-009507513-1310USA003032

PATIENT
  Sex: Female

DRUGS (2)
  1. DR. SCHOLL^S ONE STEP CORN REMOVERS [Suspect]
     Indication: HYPERKERATOSIS
     Dosage: 2 DF, UNKNOWN
     Route: 061
  2. DR. SCHOLL^S ONE STEP CORN REMOVERS [Suspect]
     Dosage: UNK
     Route: 061

REACTIONS (1)
  - Drug ineffective [Unknown]
